FAERS Safety Report 8785868 (Version 2)
Quarter: 2015Q2

REPORT INFORMATION
  Report Type: Report from Study
  Country: US (occurrence: US)
  Receive Date: 20120914
  Receipt Date: 20150625
  Transmission Date: 20150821
  Serious: Yes (Death)
  Sender: FDA-Public Use
  Company Number: US-ROCHE-1127755

PATIENT
  Sex: Female

DRUGS (21)
  1. DEXAMETHASONE SODIUM PHOSPHATE. [Concomitant]
     Active Substance: DEXAMETHASONE SODIUM PHOSPHATE
     Route: 042
  2. ZELNORM [Concomitant]
     Active Substance: TEGASEROD MALEATE
     Route: 048
  3. RANITIDINE HCL [Concomitant]
     Active Substance: RANITIDINE HYDROCHLORIDE
     Route: 042
  4. DIFLUCAN [Concomitant]
     Active Substance: FLUCONAZOLE
     Route: 048
  5. AMBIEN [Concomitant]
     Active Substance: ZOLPIDEM TARTRATE
     Route: 048
  6. XANAX [Concomitant]
     Active Substance: ALPRAZOLAM
     Route: 048
  7. PACLITAXEL. [Concomitant]
     Active Substance: PACLITAXEL
     Route: 042
  8. LORAZEPAM. [Concomitant]
     Active Substance: LORAZEPAM
     Route: 048
  9. CARBOPLATIN. [Concomitant]
     Active Substance: CARBOPLATIN
     Route: 042
  10. DIPHENHYDRAMINE HYDROCHLORIDE. [Concomitant]
     Active Substance: DIPHENHYDRAMINE HYDROCHLORIDE
     Route: 042
  11. CELEBREX [Concomitant]
     Active Substance: CELECOXIB
     Route: 048
  12. AVASTIN [Suspect]
     Active Substance: BEVACIZUMAB
     Indication: OVARIAN CANCER
     Route: 042
  13. SYNTHROID [Concomitant]
     Active Substance: LEVOTHYROXINE SODIUM
     Route: 048
  14. AVASTIN [Suspect]
     Active Substance: BEVACIZUMAB
     Indication: MALIGNANT NEOPLASM OF UTERINE ADNEXA
  15. ABRAXANE [Concomitant]
     Active Substance: PACLITAXEL
     Route: 042
  16. ARANESP [Concomitant]
     Active Substance: DARBEPOETIN ALFA
     Route: 058
  17. MIRALAX [Concomitant]
     Active Substance: POLYETHYLENE GLYCOL 3350
     Route: 048
  18. PALONOSETRON HYDROCHLORIDE [Concomitant]
     Active Substance: PALONOSETRON HYDROCHLORIDE
     Route: 042
  19. PROTONIX (UNITED STATES) [Concomitant]
     Route: 048
  20. ATARAX [Concomitant]
     Active Substance: HYDROXYZINE\HYDROXYZINE HYDROCHLORIDE
  21. PROCHLORPERAZINE MALEATE. [Concomitant]
     Active Substance: PROCHLORPERAZINE MALEATE
     Route: 048

REACTIONS (13)
  - Anxiety [Unknown]
  - Arthralgia [Unknown]
  - Death [Fatal]
  - Abdominal discomfort [Unknown]
  - Weight decreased [Unknown]
  - Crying [Unknown]
  - Dysphonia [Unknown]
  - Fatigue [Unknown]
  - Ascites [Recovered/Resolved]
  - Nausea [Unknown]
  - Bone pain [Unknown]
  - Neuropathy peripheral [Unknown]
  - Off label use [Unknown]
